FAERS Safety Report 21404175 (Version 1)
Quarter: 2022Q4

REPORT INFORMATION
  Report Type: Spontaneous
  Country: US (occurrence: US)
  Receive Date: 20221003
  Receipt Date: 20221003
  Transmission Date: 20230112
  Serious: No
  Sender: FDA-Public Use
  Company Number: US-TEVA-2022-US-2075349

PATIENT
  Age: 44 Year
  Sex: Female

DRUGS (2)
  1. CLONAZEPAM [Suspect]
     Active Substance: CLONAZEPAM
     Indication: Muscle spasms
     Dosage: .75 MILLIGRAM DAILY;
     Route: 065
     Dates: start: 202201
  2. CLONAZEPAM [Suspect]
     Active Substance: CLONAZEPAM
     Route: 065

REACTIONS (5)
  - Abdominal pain upper [Unknown]
  - Headache [Unknown]
  - Product quality issue [Unknown]
  - Drug ineffective [Unknown]
  - Product availability issue [Unknown]

NARRATIVE: CASE EVENT DATE: 20220901
